FAERS Safety Report 10226119 (Version 2)
Quarter: 2014Q3

REPORT INFORMATION
  Report Type: Report from Study
  Country: US (occurrence: US)
  Receive Date: 20140609
  Receipt Date: 20140817
  Transmission Date: 20150326
  Serious: Yes (Hospitalization)
  Sender: FDA-Public Use
  Company Number: PHHY2014US067127

PATIENT
  Age: 50 Year
  Sex: Female

DRUGS (5)
  1. IRINOTECAN [Suspect]
     Active Substance: IRINOTECAN
     Dosage: 180 MG/M2,-MOST RECENT CYCLE PRIOR TO SAE ON 19 AUG 2013
     Dates: start: 20130624
  2. 5-FLUOROURACIL [Suspect]
     Active Substance: FLUOROURACIL
     Dosage: 2400 MG/M2, -MOST RECENT CYCLE PRIOR TO SAE ON 19 AUG 2013
     Route: 041
     Dates: start: 20130624
  3. 5-FLUOROURACIL [Suspect]
     Active Substance: FLUOROURACIL
     Indication: COLORECTAL CANCER
     Dosage: 400 MG/M2,-MOST RECENT CYCLE PRIOR TO SAE ON 19 AUG 2013
     Route: 040
     Dates: start: 20130624
  4. LEUCOVORIN CALCIUM. [Suspect]
     Active Substance: LEUCOVORIN CALCIUM
     Indication: COLORECTAL CANCER
     Dosage: 400 MG/M2, -MOST RECENT CYCLE PRIOR TO SAE ON 19 AUG 2013
     Dates: start: 20130624
  5. BEVACIZUMAB [Suspect]
     Active Substance: BEVACIZUMAB
     Dosage: 2.5 MG/KG, QW
     Dates: start: 20130624

REACTIONS (3)
  - Cholecystitis [Recovered/Resolved with Sequelae]
  - Haemoptysis [Unknown]
  - Abdominal pain upper [Unknown]

NARRATIVE: CASE EVENT DATE: 20130904
